FAERS Safety Report 21163493 (Version 1)
Quarter: 2022Q3

REPORT INFORMATION
  Report Type: Spontaneous
  Country: US (occurrence: US)
  Receive Date: 20220802
  Receipt Date: 20220802
  Transmission Date: 20221027
  Serious: Yes (Hospitalization)
  Sender: FDA-Public Use
  Company Number: US-NEUROCRINE BIOSCIENCES INC.-2022NBI04930

PATIENT

DRUGS (2)
  1. INGREZZA [Suspect]
     Active Substance: VALBENAZINE
     Indication: Product used for unknown indication
     Dosage: 80 MILLIGRAM
     Route: 065
     Dates: start: 2022, end: 2022
  2. HALOPERIDOL [Concomitant]
     Active Substance: HALOPERIDOL

REACTIONS (4)
  - Liver function test abnormal [Unknown]
  - Guillain-Barre syndrome [Unknown]
  - Decreased appetite [Unknown]
  - Drug interaction [Unknown]
